FAERS Safety Report 7172674-6 (Version None)
Quarter: 2010Q4

REPORT INFORMATION
  Report Type: 
  Country: None (occurrence: None)
  Receive Date: 20101217
  Receipt Date: 20101206
  Transmission Date: 20110411
  Serious: Yes (Other)
  Sender: FDA-Public Use
  Company Number: IT-AMGEN-ITASP2010006300

PATIENT

DRUGS (6)
  1. ENBREL [Suspect]
     Indication: PSORIATIC ARTHROPATHY
     Dosage: 50 MG, CYCLIC
     Route: 058
     Dates: start: 20101014, end: 20101021
  2. VITAMIN D [Concomitant]
     Dosage: UNK
     Dates: start: 20030906
  3. METHOTREXATE SODIUM [Concomitant]
     Dosage: UNK
     Dates: start: 20030611
  4. LANSOPRAZOLE [Concomitant]
     Dosage: UNK
     Dates: start: 20060906
  5. MEDROL [Concomitant]
     Dosage: UNK
     Dates: start: 20060906
  6. FOLINA [Concomitant]
     Dosage: UNK
     Dates: start: 20030906

REACTIONS (3)
  - DYSPNOEA [None]
  - MALAISE [None]
  - VISION BLURRED [None]
